FAERS Safety Report 4877139-X (Version None)
Quarter: 2005Q4

REPORT INFORMATION
  Report Type: 
  Country: None (occurrence: None)
  Receive Date: 20051206
  Receipt Date: 20050812
  Transmission Date: 20060501
  Serious: No
  Sender: FDA-Public Use
  Company Number: USA0508105361

PATIENT
  Age: 55 Year
  Sex: Female

DRUGS (4)
  1. CYMBALTA [Suspect]
     Indication: DEPRESSION
     Dosage: 30 MG DAY
     Dates: start: 20050806, end: 20050812
  2. PAXIL [Concomitant]
  3. SYNTHROID [Concomitant]
  4. DIPHENHYDRAMINE [Concomitant]

REACTIONS (7)
  - CARDIAC FLUTTER [None]
  - FEELING DRUNK [None]
  - HYPOAESTHESIA [None]
  - IRRITABILITY [None]
  - LIP PAIN [None]
  - PAIN IN JAW [None]
  - PALPITATIONS [None]
